FAERS Safety Report 18544643 (Version 3)
Quarter: 2021Q4

REPORT INFORMATION
  Report Type: Spontaneous
  Country: US (occurrence: US)
  Receive Date: 20201125
  Receipt Date: 20211109
  Transmission Date: 20220303
  Serious: Yes (Other)
  Sender: FDA-Public Use
  Company Number: US-PFIZER INC-2020463095

PATIENT
  Age: 51 Year

DRUGS (2)
  1. CELONTIN [Suspect]
     Active Substance: METHSUXIMIDE
     Dosage: 300 MG
  2. CELONTIN [Suspect]
     Active Substance: METHSUXIMIDE
     Dosage: 1200 MG, DAILY (4 CAPSULES DAILY)

REACTIONS (1)
  - Neoplasm malignant [Unknown]
